FAERS Safety Report 10505792 (Version 3)
Quarter: 2015Q3

REPORT INFORMATION
  Report Type: Report from Study
  Country: CN (occurrence: CN)
  Receive Date: 20141008
  Receipt Date: 20150811
  Transmission Date: 20151125
  Serious: Yes (Hospitalization)
  Sender: FDA-Public Use
  Company Number: CN-ASTRAZENECA-2014SE73590

PATIENT
  Age: 23902 Day
  Sex: Male

DRUGS (11)
  1. BAYASIPIRIN [Suspect]
     Active Substance: ASPIRIN
     Indication: ACUTE CORONARY SYNDROME
     Dosage: DAILY
     Route: 048
  2. ACERTIL [Concomitant]
     Indication: CEREBROVASCULAR DISORDER
     Route: 048
     Dates: start: 20140415
  3. STUDY PROCEDURE [Suspect]
     Active Substance: INVESTIGATIONAL PRODUCT
     Indication: ACUTE CORONARY SYNDROME
     Route: 065
  4. BETALOC [Concomitant]
     Active Substance: METOPROLOL TARTRATE
     Indication: CEREBROVASCULAR DISORDER
     Route: 048
     Dates: start: 20140409, end: 20140409
  5. BETALOC [Concomitant]
     Active Substance: METOPROLOL TARTRATE
     Indication: CEREBROVASCULAR DISORDER
     Route: 048
     Dates: start: 20140413
  6. ACERTIL [Concomitant]
     Indication: CEREBROVASCULAR DISORDER
     Route: 048
     Dates: start: 20140414, end: 20140414
  7. BRILINTA [Suspect]
     Active Substance: TICAGRELOR
     Indication: ACUTE CORONARY SYNDROME
     Dosage: FIRST MAINTAIN DOSE, (90 MG) TWO TIMES A DAY
     Route: 048
     Dates: start: 20140409
  8. BETALOC [Concomitant]
     Active Substance: METOPROLOL TARTRATE
     Indication: CEREBROVASCULAR DISORDER
     Route: 048
     Dates: start: 20140412, end: 20140412
  9. BRILINTA [Suspect]
     Active Substance: TICAGRELOR
     Indication: ACUTE CORONARY SYNDROME
     Dosage: FIRST LOADING DOSE (180 MG)
     Route: 048
     Dates: start: 20140408
  10. ACERTIL [Concomitant]
     Indication: CEREBROVASCULAR DISORDER
     Route: 048
     Dates: start: 20140408, end: 20140412
  11. BETALOC [Concomitant]
     Active Substance: METOPROLOL TARTRATE
     Indication: CEREBROVASCULAR DISORDER
     Route: 048
     Dates: start: 20140408, end: 20140408

REACTIONS (1)
  - Faeces discoloured [Recovered/Resolved]

NARRATIVE: CASE EVENT DATE: 20140929
